FAERS Safety Report 11610883 (Version 1)
Quarter: 2015Q4

REPORT INFORMATION
  Report Type: Spontaneous
  Country: US (occurrence: US)
  Receive Date: 20151008
  Receipt Date: 20151008
  Transmission Date: 20160304
  Serious: Yes (Other)
  Sender: FDA-Public Use
  Company Number: US-GLAXOSMITHKLINE-US2015GSK125344

PATIENT
  Age: 56 Year
  Sex: Female

DRUGS (1)
  1. VENTOLIN HFA [Suspect]
     Active Substance: ALBUTEROL SULFATE
     Indication: CHRONIC OBSTRUCTIVE PULMONARY DISEASE
     Dosage: UNK
     Dates: start: 2013

REACTIONS (6)
  - Thrombosis [Unknown]
  - Blood test abnormal [Unknown]
  - Hysterectomy [Unknown]
  - Cystitis [Unknown]
  - Bladder perforation [Unknown]
  - Bladder repair [Unknown]

NARRATIVE: CASE EVENT DATE: 20150529
